FAERS Safety Report 8387451-8 (Version None)
Quarter: 2012Q2

REPORT INFORMATION
  Report Type: 
  Country: None (occurrence: None)
  Receive Date: 20120525
  Receipt Date: 20120518
  Transmission Date: 20120825
  Serious: Yes (Hospitalization)
  Sender: FDA-Public Use
  Company Number: PHHY2012EC043969

PATIENT
  Sex: Male

DRUGS (1)
  1. TRILEPTAL [Suspect]
     Indication: EPILEPSY
     Dosage: 5 ML, BID
     Dates: start: 20111113

REACTIONS (3)
  - TESTICULAR TORSION [None]
  - INFLAMMATION [None]
  - TESTICULAR PAIN [None]
